FAERS Safety Report 12779412 (Version 2)
Quarter: 2016Q4

REPORT INFORMATION
  Report Type: Spontaneous
  Country: US (occurrence: US)
  Receive Date: 20160926
  Receipt Date: 20161007
  Transmission Date: 20170207
  Serious: Yes (Other)
  Sender: FDA-Public Use
  Company Number: PHEH2016US023527

PATIENT
  Sex: Male

DRUGS (5)
  1. COSENTYX [Suspect]
     Active Substance: SECUKINUMAB
     Indication: PSORIATIC ARTHROPATHY
     Dosage: 150 MG, QMO
     Route: 058
     Dates: start: 20160801
  2. PERCOCET [Suspect]
     Active Substance: ACETAMINOPHEN\OXYCODONE HYDROCHLORIDE
     Indication: GINGIVAL PAIN
  3. KEFLEX [Suspect]
     Active Substance: CEPHALEXIN
     Indication: GINGIVAL PAIN
  4. KEFLEX [Suspect]
     Active Substance: CEPHALEXIN
     Indication: GINGIVAL ABSCESS
     Route: 065
  5. PERCOCET [Suspect]
     Active Substance: ACETAMINOPHEN\OXYCODONE HYDROCHLORIDE
     Indication: GINGIVAL ABSCESS
     Route: 065

REACTIONS (3)
  - Gingival abscess [Unknown]
  - Gingival pain [Unknown]
  - Pruritus generalised [Recovering/Resolving]
